FAERS Safety Report 4709876-1 (Version None)
Quarter: 2005Q3

REPORT INFORMATION
  Report Type: 
  Country: None (occurrence: None)
  Receive Date: 20050708
  Receipt Date: 20050629
  Transmission Date: 20060218
  Serious: Yes (Other)
  Sender: FDA-Public Use
  Company Number: BR-ABBOTT-05P-020-0304814-00

PATIENT
  Sex: Female

DRUGS (1)
  1. PLENTY [Suspect]
     Indication: WEIGHT CONTROL
     Route: 048

REACTIONS (1)
  - BRONCHOSPASM [None]
